FAERS Safety Report 19946573 (Version 1)
Quarter: 2021Q4

REPORT INFORMATION
  Report Type: Report from Study
  Country: ID (occurrence: ID)
  Receive Date: 20211012
  Receipt Date: 20211012
  Transmission Date: 20220303
  Serious: Yes (Other)
  Sender: FDA-Public Use
  Company Number: 2021A694724

PATIENT
  Sex: Female

DRUGS (2)
  1. IRESSA [Suspect]
     Active Substance: GEFITINIB
     Dosage: UNKNOWN DOSE; UNKNOWN FREQUENCY
     Route: 048
  2. TAGRISSO [Concomitant]
     Active Substance: OSIMERTINIB

REACTIONS (3)
  - Disease progression [Unknown]
  - Cough [Not Recovered/Not Resolved]
  - Haemoptysis [Unknown]
